FAERS Safety Report 8025202-7 (Version None)
Quarter: 2012Q1

REPORT INFORMATION
  Report Type: 
  Country: None (occurrence: None)
  Receive Date: 20120105
  Receipt Date: 20111227
  Transmission Date: 20120608
  Serious: Yes (Hospitalization)
  Sender: FDA-Public Use
  Company Number: FR-GLAXOSMITHKLINE-B0771596A

PATIENT
  Sex: Female

DRUGS (6)
  1. LAMICTAL [Suspect]
     Indication: EPILEPSY
     Route: 048
     Dates: start: 20110909, end: 20111015
  2. CLONAZEPAM [Concomitant]
     Route: 065
  3. PAROXETINE HCL [Concomitant]
     Route: 065
  4. CLORAZEPATE DIPOTASSIUM [Concomitant]
     Route: 065
  5. LYRICA [Concomitant]
     Route: 065
  6. XYZAL [Concomitant]
     Route: 065

REACTIONS (2)
  - DRUG RASH WITH EOSINOPHILIA AND SYSTEMIC SYMPTOMS [None]
  - TOXIC SKIN ERUPTION [None]
